FAERS Safety Report 12415363 (Version 1)
Quarter: 2016Q2

REPORT INFORMATION
  Report Type: Spontaneous
  Country: US (occurrence: US)
  Receive Date: 20160530
  Receipt Date: 20160530
  Transmission Date: 20160815
  Serious: No
  Sender: FDA-Public Use
  Company Number: US-PFIZER INC-2016257970

PATIENT
  Age: 81 Year
  Sex: Male
  Weight: 88 kg

DRUGS (2)
  1. LATANOPROST. [Suspect]
     Active Substance: LATANOPROST
     Indication: GLAUCOMA
     Dosage: UNK, 1X/DAY, 0.005%, 1 DROP EACH EYE, NIGHTLY
     Route: 047
     Dates: start: 201506, end: 20160512
  2. DORZOLAMIDE/TIMOLOL /01419801/ [Suspect]
     Active Substance: DORZOLAMIDE\TIMOLOL
     Indication: GLAUCOMA
     Dosage: UNK UNK, 2X/DAY,1 DROP BOTH EYES,[DORZOLAMIDE HYDROCHLORIDE 22.3 MG/ML]/[ TIMOLOL MALEATE 6.8 MG/ML]
     Route: 047
     Dates: start: 20150506

REACTIONS (5)
  - Eye pruritus [Not Recovered/Not Resolved]
  - Intraocular pressure increased [Unknown]
  - Erythema [Not Recovered/Not Resolved]
  - Eye swelling [Not Recovered/Not Resolved]
  - Eye irritation [Not Recovered/Not Resolved]

NARRATIVE: CASE EVENT DATE: 201604
